FAERS Safety Report 4292407-0 (Version None)
Quarter: 2004Q1

REPORT INFORMATION
  Report Type: 
  Country: None (occurrence: None)
  Receive Date: 20040126
  Receipt Date: 20030909
  Transmission Date: 20041129
  Serious: No
  Sender: FDA-Public Use
  Company Number: USA030843266

PATIENT
  Age: 80 Year
  Sex: Female
  Weight: 66 kg

DRUGS (2)
  1. FORTEO [Suspect]
     Indication: OSTEOPOROSIS
     Dosage: 20 UG/IN THE MORNING
     Dates: start: 20030501
  2. FORTEO [Suspect]
     Indication: SPINAL COMPRESSION FRACTURE
     Dosage: 20 UG/IN THE MORNING
     Dates: start: 20030501

REACTIONS (3)
  - MUSCLE CRAMP [None]
  - NAUSEA [None]
  - PAIN IN EXTREMITY [None]
